FAERS Safety Report 6955061-2 (Version None)
Quarter: 2010Q3

REPORT INFORMATION
  Report Type: 
  Country: None (occurrence: None)
  Receive Date: 20100830
  Receipt Date: 20100819
  Transmission Date: 20110219
  Serious: Yes (Other)
  Sender: FDA-Public Use
  Company Number: DE-ASTRAZENECA-2010SE39012

PATIENT
  Sex: Female

DRUGS (5)
  1. NAROPIN [Suspect]
     Indication: PAIN
     Route: 037
  2. TRAMADOL HCL [Concomitant]
  3. IBUPROFEN [Concomitant]
  4. DOMPERIDON [Concomitant]
  5. OMEP [Concomitant]

REACTIONS (1)
  - SUICIDAL IDEATION [None]
